FAERS Safety Report 8603240-0 (Version None)
Quarter: 2012Q3

REPORT INFORMATION
  Report Type: 
  Country: None (occurrence: None)
  Receive Date: 20120817
  Receipt Date: 20120809
  Transmission Date: 20120928
  Serious: Yes (Hospitalization)
  Sender: FDA-Public Use
  Company Number: GB-ABBOTT-12P-167-0967255-02

PATIENT
  Sex: Female
  Weight: 57 kg

DRUGS (12)
  1. HUMIRA [Suspect]
     Indication: CROHN'S DISEASE
     Route: 058
     Dates: start: 20090901, end: 20090901
  2. HUMIRA [Suspect]
     Route: 058
  3. HUMIRA [Suspect]
     Route: 058
  4. PREDNISONE TAB [Concomitant]
  5. MULTI-VITAMINS [Concomitant]
     Indication: MINERAL DEFICIENCY
  6. HYDROXOCOBALAMIN [Concomitant]
     Indication: ANAEMIA MACROCYTIC
     Dates: start: 20100112
  7. HUMIRA [Suspect]
     Route: 058
     Dates: start: 20100209
  8. LOPERAMIDE [Concomitant]
     Indication: GASTROINTESTINAL HYPERMOTILITY
     Dates: start: 20090201
  9. MERCAPTOPURINE [Concomitant]
     Indication: CROHN'S DISEASE
     Dates: start: 20100212
  10. MERCAPTOPURINE [Concomitant]
     Indication: INFLAMMATORY MARKER INCREASED
  11. MULTI-VITAMINS [Concomitant]
     Indication: HYPOVITAMINOSIS
     Dates: start: 20100727
  12. PREDNISONE TAB [Concomitant]
     Indication: CROHN'S DISEASE
     Dosage: 30 MG REDUCING DOSE
     Dates: start: 20091031, end: 20091101

REACTIONS (1)
  - ILEOSTOMY CLOSURE [None]
